FAERS Safety Report 5597392-7 (Version None)
Quarter: 2007Q4

REPORT INFORMATION
  Report Type: 
  Country: None (occurrence: None)
  Receive Date: 20071221
  Receipt Date: 20070920
  Transmission Date: 20080405
  Serious: No
  Sender: FDA-Public Use
  Company Number: SPV1-2007-04257

PATIENT
  Age: 47 Year
  Sex: Female
  Weight: 104.3 kg

DRUGS (6)
  1. VYVANSE [Suspect]
     Indication: DEPRESSION
     Dosage: 50 MG, 1X/DAY:QD, ORAL
     Route: 048
     Dates: start: 20070907
  2. LIALDA [Suspect]
     Indication: CROHN'S DISEASE
     Dosage: 2.4 MG, 2X.DAY:BID
     Dates: start: 20070301
  3. ZANTAC [Concomitant]
  4. AMBIEN CR [Concomitant]
  5. METFORMIN HCL [Concomitant]
  6. TRILEPTAL [Concomitant]

REACTIONS (3)
  - DYSPEPSIA [None]
  - NAUSEA [None]
  - OFF LABEL USE [None]
